FAERS Safety Report 4349746-4 (Version None)
Quarter: 2004Q2

REPORT INFORMATION
  Report Type: 
  Country: None (occurrence: None)
  Receive Date: 20040426
  Receipt Date: 20040413
  Transmission Date: 20050107
  Serious: Yes (Other)
  Sender: FDA-Public Use
  Company Number: 2004018978

PATIENT
  Age: 66 Year
  Sex: Male

DRUGS (3)
  1. GEODON [Suspect]
     Indication: SCHIZOPHRENIA
     Dates: start: 20030101
  2. BENZATROPINE MESILATE (BENZATROPINE MESILATE) [Concomitant]
  3. ARIPIPRAZOLE (ARIPIPRAZOLE) [Concomitant]

REACTIONS (1)
  - BLOOD GLUCOSE INCREASED [None]
